FAERS Safety Report 6030412-4 (Version None)
Quarter: 2009Q1

REPORT INFORMATION
  Report Type: 
  Country: None (occurrence: None)
  Receive Date: 20090107
  Receipt Date: 20081212
  Transmission Date: 20090719
  Serious: Yes (Death)
  Sender: FDA-Public Use
  Company Number: FR-AVENTIS-200814408FR

PATIENT
  Age: 70 Year
  Sex: Male

DRUGS (7)
  1. LOVENOX [Suspect]
     Indication: ATRIAL FLUTTER
     Route: 058
     Dates: start: 20080807, end: 20080820
  2. CALCIPARINE [Suspect]
     Indication: ATRIAL FLUTTER
     Route: 058
     Dates: start: 20080726, end: 20080807
  3. AUGMENTIN '125' [Suspect]
     Indication: DRUG USE FOR UNKNOWN INDICATION
     Dates: start: 20080725, end: 20080811
  4. HEMIGOXINE [Concomitant]
     Indication: ATRIAL FLUTTER
     Route: 048
     Dates: start: 20080804
  5. LANTUS [Concomitant]
     Indication: DRUG USE FOR UNKNOWN INDICATION
     Route: 058
     Dates: start: 20080615
  6. DIGOXIN [Concomitant]
     Indication: ATRIAL FLUTTER
     Route: 048
     Dates: start: 20080726, end: 20080804
  7. SOLU-MEDROL [Concomitant]
     Indication: DRUG USE FOR UNKNOWN INDICATION
     Dates: start: 20080731

REACTIONS (1)
  - THROMBOCYTOPENIA [None]
